FAERS Safety Report 23450460 (Version 2)
Quarter: 2024Q1

REPORT INFORMATION
  Report Type: Spontaneous
  Country: KR (occurrence: KR)
  Receive Date: 20240129
  Receipt Date: 20240205
  Transmission Date: 20240410
  Serious: Yes (Other)
  Sender: FDA-Public Use
  Company Number: KR-TAKEDA-2024TUS007170

PATIENT
  Sex: Male
  Weight: 40 kg

DRUGS (3)
  1. LANSOPRAZOLE [Suspect]
     Active Substance: LANSOPRAZOLE
     Indication: Gastrointestinal disorder
     Dosage: 30 MILLIGRAM, QD
     Route: 048
     Dates: start: 20240105, end: 20240114
  2. LANSOPRAZOLE [Suspect]
     Active Substance: LANSOPRAZOLE
     Indication: Gastrointestinal disorder
     Route: 065
  3. TIROPRAMIDE [Concomitant]
     Active Substance: TIROPRAMIDE
     Indication: Product used for unknown indication
     Dosage: UNK
     Dates: end: 20240106

REACTIONS (17)
  - Pulmonary congestion [Unknown]
  - Myalgia [Unknown]
  - Off label use [Unknown]
  - Dyspepsia [Unknown]
  - Swollen tongue [Recovering/Resolving]
  - Productive cough [Unknown]
  - Sensation of foreign body [Unknown]
  - Arteriosclerosis [Unknown]
  - Urine abnormality [Unknown]
  - Swelling [Unknown]
  - Gastrooesophageal reflux disease [Unknown]
  - Condition aggravated [Unknown]
  - Abdominal discomfort [Unknown]
  - Dyspnoea [Unknown]
  - Peripheral swelling [Unknown]
  - Product packaging issue [Unknown]
  - Eructation [Unknown]

NARRATIVE: CASE EVENT DATE: 20240105
